FAERS Safety Report 13239811 (Version 1)
Quarter: 2017Q1

REPORT INFORMATION
  Report Type: Spontaneous
  Country: US (occurrence: US)
  Receive Date: 20170216
  Receipt Date: 20170216
  Transmission Date: 20170428
  Serious: No
  Sender: FDA-Public Use
  Company Number: US-RELYPSA-RLY2016003568

PATIENT
  Sex: Female

DRUGS (11)
  1. LASIX [Concomitant]
     Active Substance: FUROSEMIDE
  2. COMBIVENT RESPIMAT [Concomitant]
     Active Substance: ALBUTEROL SULFATE\IPRATROPIUM BROMIDE
  3. ZETIA [Concomitant]
     Active Substance: EZETIMIBE
  4. CRESTOR [Concomitant]
     Active Substance: ROSUVASTATIN CALCIUM
  5. HUMALOG [Concomitant]
     Active Substance: INSULIN LISPRO
  6. PROAIR HFA [Concomitant]
     Active Substance: ALBUTEROL SULFATE
  7. LANTUS [Concomitant]
     Active Substance: INSULIN GLARGINE
  8. ASPIRIN                            /00002701/ [Concomitant]
     Active Substance: ASPIRIN
  9. VELTASSA [Suspect]
     Active Substance: PATIROMER
     Indication: HYPERKALAEMIA
     Dosage: 8.4 G, QD
     Route: 048
     Dates: start: 20160624
  10. CARVEDILOL. [Concomitant]
     Active Substance: CARVEDILOL
  11. DETROL LA [Concomitant]
     Active Substance: TOLTERODINE TARTRATE

REACTIONS (1)
  - Constipation [Not Recovered/Not Resolved]
